FAERS Safety Report 7077124 (Version 3)
Quarter: 2014Q1

REPORT INFORMATION
  Report Type: Spontaneous
  Country: US (occurrence: None)
  Receive Date: 20090803
  Receipt Date: 20140108
  Transmission Date: 20141002
  Serious: Yes (Other)
  Sender: FDA-Public Use
  Company Number: 2009S1005863

PATIENT
  Age: 59 Year
  Sex: Female

DRUGS (5)
  1. PHOSPHO-SODA [Suspect]
     Indication: COLONOSCOPY
     Dosage: 90 ML; TOTAL; PO
     Route: 048
     Dates: start: 20031209, end: 20031210
  2. VIOXX [Suspect]
  3. LIPITOR [Concomitant]
  4. CELEBREX [Concomitant]
  5. PROZAC [Concomitant]

REACTIONS (5)
  - Toxicity to various agents [None]
  - Hyperphosphataemia [None]
  - Renal failure [None]
  - Dialysis [None]
  - Transplant [None]
